FAERS Safety Report 6139610-2 (Version None)
Quarter: 2009Q2

REPORT INFORMATION
  Report Type: 
  Country: None (occurrence: None)
  Receive Date: 20090401
  Receipt Date: 20090330
  Transmission Date: 20091009
  Serious: Yes (Hospitalization)
  Sender: FDA-Public Use
  Company Number: JP-B.I. PHARMACEUTICALS,INC./RIDGEFIELD-2008-BP-06227NB

PATIENT
  Sex: Male
  Weight: 44 kg

DRUGS (5)
  1. MICARDIS [Suspect]
     Indication: HYPERTENSION
     Dosage: 40MG
     Route: 048
     Dates: start: 20070209, end: 20071101
  2. TAKEPRON [Concomitant]
     Indication: PROPHYLAXIS
     Dosage: 15MG
     Route: 048
  3. LASIX [Concomitant]
     Dosage: 60MG
     Route: 048
  4. ZYLORIC [Concomitant]
     Dosage: 200MG
     Route: 048
  5. ASPIRIN [Concomitant]
     Dosage: 100MG
     Route: 048

REACTIONS (1)
  - CARDIAC FAILURE [None]
